FAERS Safety Report 24397126 (Version 1)
Quarter: 2024Q4

REPORT INFORMATION
  Report Type: Spontaneous
  Country: US (occurrence: None)
  Receive Date: 20241003
  Receipt Date: 20241003
  Transmission Date: 20250114
  Serious: Yes (Hospitalization)
  Sender: Public
  Company Number: None

PATIENT
  Age: 40 Year
  Sex: Male

DRUGS (3)
  1. KETOROLAC TROMETHAMINE [Suspect]
     Active Substance: KETOROLAC TROMETHAMINE
     Indication: Pain
     Dosage: OTHER FREQUENCY : ONCE;?
     Route: 030
     Dates: start: 20240418
  2. APIXABAN [Suspect]
     Active Substance: APIXABAN
  3. PREDNISONE [Suspect]
     Active Substance: PREDNISONE

REACTIONS (10)
  - Haemodialysis [None]
  - Arthralgia [None]
  - Rectal haemorrhage [None]
  - Haematemesis [None]
  - Gastrointestinal haemorrhage [None]
  - Oesophagitis [None]
  - Gastric ulcer [None]
  - Duodenitis [None]
  - Red blood cell transfusion [None]
  - Anaemia [None]

NARRATIVE: CASE EVENT DATE: 20240422
